FAERS Safety Report 6420398-2 (Version None)
Quarter: 2009Q4

REPORT INFORMATION
  Report Type: 
  Country: None (occurrence: None)
  Receive Date: 20091029
  Receipt Date: 20091016
  Transmission Date: 20100525
  Serious: Yes (Hospitalization, Other)
  Sender: FDA-Public Use
  Company Number: NL-ELI_LILLY_AND_COMPANY-NL200909001388

PATIENT
  Sex: Male

DRUGS (7)
  1. ZYPREXA [Suspect]
     Indication: SLEEP DISORDER
     Dosage: UNK, UNKNOWN
     Route: 065
     Dates: start: 19970101, end: 20021101
  2. ZYPREXA [Suspect]
     Dosage: UNK, UNKNOWN
     Route: 065
     Dates: start: 20060301
  3. ZYPREXA [Suspect]
     Dosage: 10 MG, DAILY (1/D)
  4. METFORMIN HCL [Concomitant]
     Dosage: 1 D/F, DAILY (1/D)
     Route: 065
  5. METFORMIN HCL [Concomitant]
     Dosage: 2 (1000 D/F), DAILY (1/D)
     Dates: start: 20090406
  6. SEROQUEL [Concomitant]
     Dosage: UNK, UNKNOWN
     Route: 065
     Dates: start: 20021101
  7. KETOCONAZOLE [Concomitant]
     Dosage: 20 D/F, 2/D
     Route: 065

REACTIONS (22)
  - ABDOMINAL PAIN UPPER [None]
  - ANAL HAEMORRHAGE [None]
  - ASTHENIA [None]
  - ATTENTION DEFICIT/HYPERACTIVITY DISORDER [None]
  - BLOOD GLUCOSE INCREASED [None]
  - BRONCHOSPASM [None]
  - DELUSIONAL DISORDER, PERSECUTORY TYPE [None]
  - DIARRHOEA [None]
  - DRY EYE [None]
  - HYPERCHOLESTEROLAEMIA [None]
  - HYPERGLYCAEMIA [None]
  - HYPOCHONDRIASIS [None]
  - IRRITABILITY [None]
  - LISTLESS [None]
  - OFF LABEL USE [None]
  - PALPITATIONS [None]
  - RENAL IMPAIRMENT [None]
  - RESTLESSNESS [None]
  - SCHIZOID PERSONALITY DISORDER [None]
  - STRESS [None]
  - TACHYCARDIA [None]
  - TYPE 2 DIABETES MELLITUS [None]
